FAERS Safety Report 24929300 (Version 1)
Quarter: 2025Q1

REPORT INFORMATION
  Report Type: Spontaneous
  Country: NL (occurrence: NL)
  Receive Date: 20250205
  Receipt Date: 20250205
  Transmission Date: 20250408
  Serious: Yes (Hospitalization, Other)
  Sender: MYLAN
  Company Number: NL-TAKEDA-2025TUS006165

PATIENT
  Age: 48 Year
  Sex: Male

DRUGS (3)
  1. METHOTREXATE [Suspect]
     Active Substance: METHOTREXATE
     Indication: Product used for unknown indication
     Route: 065
     Dates: start: 201510, end: 201709
  2. AZATHIOPRINE [Suspect]
     Active Substance: AZATHIOPRINE
     Indication: Product used for unknown indication
     Route: 065
     Dates: start: 201311
  3. ENTYVIO [Suspect]
     Active Substance: VEDOLIZUMAB
     Indication: Crohn^s disease
     Route: 065
     Dates: start: 201510, end: 202312

REACTIONS (11)
  - Crohn^s disease [Unknown]
  - Intestinal obstruction [Unknown]
  - Intestinal stenosis [Unknown]
  - Intestinal fistula [Unknown]
  - Fistula of small intestine [Unknown]
  - Night sweats [Unknown]
  - Pyrexia [Unknown]
  - Musculoskeletal discomfort [Unknown]
  - Abdominal distension [Unknown]
  - Nausea [Unknown]
  - Off label use [Unknown]
